FAERS Safety Report 21223788 (Version 1)
Quarter: 2022Q3

REPORT INFORMATION
  Report Type: Spontaneous
  Country: CN (occurrence: CN)
  Receive Date: 20220817
  Receipt Date: 20220817
  Transmission Date: 20221026
  Serious: Yes (Other)
  Sender: FDA-Public Use
  Company Number: CN-PFIZER INC-PV202200043560

PATIENT
  Age: 32 Year
  Sex: Female
  Weight: 50 kg

DRUGS (2)
  1. MISOPROSTOL [Suspect]
     Active Substance: MISOPROSTOL
     Indication: Abortion induced
     Dosage: 0.4 G, 1X/DAY
     Route: 002
     Dates: start: 20220125, end: 20220125
  2. MISOPROSTOL [Suspect]
     Active Substance: MISOPROSTOL
     Dosage: 0.2 G, 1X/DAY
     Route: 067
     Dates: start: 20220125, end: 20220125

REACTIONS (6)
  - Feeling cold [Recovered/Resolved]
  - Blood pressure diastolic increased [Recovered/Resolved]
  - Chills [Recovered/Resolved]
  - Pruritus [Recovered/Resolved]
  - Off label use [Unknown]
  - Off label use [Unknown]

NARRATIVE: CASE EVENT DATE: 20220125
